FAERS Safety Report 6768503-2 (Version None)
Quarter: 2010Q2

REPORT INFORMATION
  Report Type: 
  Country: None (occurrence: None)
  Receive Date: 20100614
  Receipt Date: 20100602
  Transmission Date: 20101027
  Serious: Yes (Other)
  Sender: FDA-Public Use
  Company Number: BR-PFIZER INC-2010028464

PATIENT
  Age: 42 Year
  Sex: Female
  Weight: 104 kg

DRUGS (13)
  1. CHAMPIX [Suspect]
     Indication: TOBACCO USER
     Dosage: 0.5 MG, 1X/DAY
     Route: 048
     Dates: start: 20100303, end: 20100301
  2. CHAMPIX [Suspect]
     Dosage: 1 MG, 2X/DAY
     Route: 048
     Dates: start: 20100301, end: 20100529
  3. OMEPRAZOLE [Concomitant]
     Dosage: UNK
  4. BROMAZEPAM [Concomitant]
     Dosage: UNK
  5. OLMETEC [Concomitant]
     Dosage: UNK
  6. VYTORIN [Concomitant]
     Dosage: UNK
  7. PARACETAMOL [Concomitant]
     Dosage: UNK
  8. GABAPENTIN [Concomitant]
     Dosage: UNK
  9. PANTOPRAZOL [Concomitant]
     Dosage: UNK
  10. SIBUTRAMINE [Concomitant]
     Dosage: UNK
  11. CAFFEINE [Concomitant]
     Dosage: UNK
  12. CARISOPRODOL [Concomitant]
     Dosage: UNK
  13. DICLOFENAC [Concomitant]
     Dosage: UNK

REACTIONS (3)
  - HERNIA [None]
  - NERVOUSNESS [None]
  - WEIGHT INCREASED [None]
